FAERS Safety Report 12309594 (Version 2)
Quarter: 2016Q2

REPORT INFORMATION
  Report Type: Spontaneous
  Country: AR (occurrence: AR)
  Receive Date: 20160427
  Receipt Date: 20160509
  Transmission Date: 20160815
  Serious: Yes (Hospitalization)
  Sender: FDA-Public Use
  Company Number: AR-ROCHE-1747726

PATIENT
  Age: 57 Year
  Sex: Female

DRUGS (3)
  1. TOBRAMYCIN. [Suspect]
     Active Substance: TOBRAMYCIN
     Indication: PRODUCT USED FOR UNKNOWN INDICATION
     Route: 065
  2. TOBI [Suspect]
     Active Substance: TOBRAMYCIN
     Indication: CYSTIC FIBROSIS
     Route: 065
     Dates: start: 2013
  3. TOBI [Suspect]
     Active Substance: TOBRAMYCIN
     Dosage: IN THE MORNING AND AND AT NIGHT
     Route: 065

REACTIONS (4)
  - Hypersensitivity [Recovered/Resolved]
  - Product use issue [Unknown]
  - Asthma [Recovering/Resolving]
  - Infection [Recovered/Resolved]
